FAERS Safety Report 12640084 (Version 1)
Quarter: 2016Q3

REPORT INFORMATION
  Report Type: Spontaneous
  Country: US (occurrence: None)
  Receive Date: 20160809
  Receipt Date: 20160809
  Transmission Date: 20161109
  Serious: Yes (Life-Threatening)
  Sender: FDA-Public Use
  Company Number: None

PATIENT
  Age: 40 Year
  Sex: Female
  Weight: 122.6 kg

DRUGS (1)
  1. ACETYLCYSTEINE INJECTION, 6GM/30ML FRESENIUS KABI/HOSPITAL PHARMACY [Suspect]
     Active Substance: ACETYLCYSTEINE
     Indication: TOXICITY TO VARIOUS AGENTS
     Route: 040
     Dates: start: 20160731, end: 20160731

REACTIONS (10)
  - Speech disorder [None]
  - Toxicity to various agents [None]
  - Liver function test increased [None]
  - Dyspnoea [None]
  - Wheezing [None]
  - Anxiety [None]
  - Suicide attempt [None]
  - Flushing [None]
  - Hypersensitivity [None]
  - Seizure [None]

NARRATIVE: CASE EVENT DATE: 20160731
